FAERS Safety Report 9044935 (Version 12)
Quarter: 2014Q2

REPORT INFORMATION
  Report Type: Report from Study
  Country: JP (occurrence: JP)
  Receive Date: 20130130
  Receipt Date: 20140402
  Transmission Date: 20141212
  Serious: Yes (Life-Threatening, Hospitalization)
  Sender: FDA-Public Use
  Company Number: JP-GLAXOSMITHKLINE-B0863022A

PATIENT
  Age: 47 Year
  Sex: Male
  Weight: 67 kg

DRUGS (134)
  1. VOTRIENT 200MG [Suspect]
     Indication: LIPOSARCOMA
     Dosage: 800MG PER DAY
     Route: 048
     Dates: start: 20130124, end: 20130211
  2. VOTRIENT 200MG [Suspect]
     Indication: LIPOSARCOMA
     Dosage: 200MG PER DAY
     Route: 048
     Dates: start: 20130211, end: 20130329
  3. ZYVOX [Suspect]
     Route: 042
     Dates: start: 20130206, end: 20130208
  4. DECADRON [Concomitant]
     Indication: CACHEXIA
     Dosage: .5MG TWICE PER DAY
     Route: 048
     Dates: start: 20130125, end: 20130129
  5. DECADRON [Concomitant]
     Indication: CACHEXIA
     Dosage: .5MG TWICE PER DAY
     Route: 048
     Dates: start: 20130205, end: 20130212
  6. DECADRON [Concomitant]
     Indication: CACHEXIA
     Dosage: .5MG PER DAY
     Route: 048
     Dates: start: 20130207, end: 20130208
  7. DECADRON [Concomitant]
     Indication: CACHEXIA
     Dosage: 3.5MG PER DAY
     Route: 048
     Dates: start: 20130208, end: 20130208
  8. DECADRON [Concomitant]
     Indication: CACHEXIA
     Dosage: 8MG PER DAY
     Route: 048
     Dates: start: 20130209, end: 20130223
  9. DECADRON [Concomitant]
     Indication: CACHEXIA
     Dosage: 8MG PER DAY
     Route: 048
     Dates: start: 20130226, end: 20130228
  10. DECADRON [Concomitant]
     Indication: CACHEXIA
     Dosage: 16MG PER DAY
     Route: 048
     Dates: start: 20130301, end: 20130301
  11. DECADRON [Concomitant]
     Indication: CACHEXIA
     Dosage: 8MG PER DAY
     Route: 048
     Dates: start: 20130302, end: 20130303
  12. DECADRON [Concomitant]
     Indication: CACHEXIA
     Dosage: 16MG PER DAY
     Route: 048
     Dates: start: 20130304, end: 20130304
  13. DECADRON [Concomitant]
     Indication: CACHEXIA
     Dosage: 8MG PER DAY
     Route: 048
     Dates: start: 20130305, end: 20130313
  14. DECADRON [Concomitant]
     Indication: CACHEXIA
     Route: 048
     Dates: start: 20130314, end: 20130314
  15. DECADRON [Concomitant]
     Indication: CACHEXIA
     Dosage: 6MG PER DAY
     Route: 048
     Dates: start: 20130315, end: 20130317
  16. DECADRON [Concomitant]
     Indication: CACHEXIA
     Dosage: 4MG PER DAY
     Route: 048
     Dates: start: 20130318, end: 20130318
  17. DECADRON [Concomitant]
     Indication: CACHEXIA
     Dosage: 8MG PER DAY
     Route: 048
     Dates: start: 20130319, end: 20130321
  18. DECADRON [Concomitant]
     Indication: CACHEXIA
     Dosage: 4MG PER DAY
     Route: 048
     Dates: start: 20130322, end: 20130322
  19. DECADRON [Concomitant]
     Indication: CACHEXIA
     Dosage: 4MG PER DAY
     Route: 048
     Dates: start: 20130325, end: 20130327
  20. DECADRON [Concomitant]
     Indication: CACHEXIA
     Dosage: 8MG PER DAY
     Route: 048
     Dates: start: 20130328, end: 20130328
  21. DECADRON [Concomitant]
     Indication: CACHEXIA
     Dosage: 4MG PER DAY
     Route: 048
     Dates: start: 20130329, end: 20130403
  22. DECADRON [Concomitant]
     Indication: CACHEXIA
     Dosage: 8MG PER DAY
     Route: 048
     Dates: start: 20130404, end: 20130406
  23. DECADRON [Concomitant]
     Indication: CACHEXIA
     Dosage: 4MG PER DAY
     Route: 048
     Dates: start: 20130407, end: 20130410
  24. OXYCONTIN [Concomitant]
     Indication: NEURALGIA
     Dosage: 40MG TWICE PER DAY
     Route: 048
     Dates: start: 20130125, end: 20130128
  25. OXYCONTIN [Concomitant]
     Indication: NEURALGIA
     Dosage: 30MG TWICE PER DAY
     Route: 048
     Dates: start: 20130205, end: 20130212
  26. OXYCONTIN [Concomitant]
     Indication: NEURALGIA
     Dosage: 40MG TWICE PER DAY
     Route: 048
     Dates: start: 20130205, end: 20130223
  27. OXYCONTIN [Concomitant]
     Indication: NEURALGIA
     Dosage: 40MG TWICE PER DAY
     Route: 048
     Dates: start: 20130226, end: 20130228
  28. OXYCONTIN [Concomitant]
     Indication: NEURALGIA
     Dosage: 80MG TWICE PER DAY
     Route: 048
     Dates: start: 20130301, end: 20130301
  29. OXYCONTIN [Concomitant]
     Indication: NEURALGIA
     Dosage: 40MG TWICE PER DAY
     Route: 048
     Dates: start: 20130302, end: 20130303
  30. OXYCONTIN [Concomitant]
     Indication: NEURALGIA
     Dosage: 80MG TWICE PER DAY
     Route: 048
     Dates: start: 20130304, end: 20130304
  31. OXYCONTIN [Concomitant]
     Indication: NEURALGIA
     Dosage: 40MG TWICE PER DAY
     Route: 048
     Dates: start: 20130305, end: 20130313
  32. OXYCONTIN [Concomitant]
     Indication: NEURALGIA
     Dosage: 70MG TWICE PER DAY
     Route: 048
     Dates: start: 20130314, end: 20130314
  33. OXYCONTIN [Concomitant]
     Indication: NEURALGIA
     Dosage: 30MG TWICE PER DAY
     Route: 048
     Dates: start: 20130315, end: 20130317
  34. OXYCONTIN [Concomitant]
     Indication: NEURALGIA
     Dosage: 40MG TWICE PER DAY
     Route: 048
     Dates: start: 20130318, end: 20130318
  35. OXYCONTIN [Concomitant]
     Indication: NEURALGIA
     Dosage: 80MG TWICE PER DAY
     Route: 048
     Dates: start: 20130319, end: 20130320
  36. OXYCONTIN [Concomitant]
     Indication: NEURALGIA
     Dosage: 90MG TWICE PER DAY
     Route: 048
     Dates: start: 20130321, end: 20130321
  37. OXYCONTIN [Concomitant]
     Indication: NEURALGIA
     Dosage: 100MG TWICE PER DAY
     Route: 048
     Dates: start: 20130322, end: 20130322
  38. OXYCONTIN [Concomitant]
     Indication: NEURALGIA
     Dosage: 50MG TWICE PER DAY
     Route: 048
     Dates: start: 20130323, end: 20130324
  39. OXYCONTIN [Concomitant]
     Indication: NEURALGIA
     Dosage: 100MG TWICE PER DAY
     Route: 048
     Dates: start: 20130325, end: 20130325
  40. OXYCONTIN [Concomitant]
     Indication: NEURALGIA
     Dosage: 90MG TWICE PER DAY
     Route: 048
     Dates: start: 20130326, end: 20130327
  41. OXYCONTIN [Concomitant]
     Indication: NEURALGIA
     Dosage: 140MG TWICE PER DAY
     Route: 048
     Dates: start: 20130328, end: 20130328
  42. OXYCONTIN [Concomitant]
     Indication: NEURALGIA
     Dosage: 90MG TWICE PER DAY
     Route: 048
     Dates: start: 20130329, end: 20130330
  43. OXYCONTIN [Concomitant]
     Indication: NEURALGIA
     Dosage: 90MG TWICE PER DAY
     Route: 048
     Dates: start: 20130331, end: 20130331
  44. OXYCONTIN [Concomitant]
     Indication: NEURALGIA
     Dosage: 50MG TWICE PER DAY
     Route: 048
     Dates: start: 20130401, end: 20130402
  45. OXYCONTIN [Concomitant]
     Indication: NEURALGIA
     Route: 048
     Dates: start: 20130403, end: 20130403
  46. OXYCONTIN [Concomitant]
     Indication: NEURALGIA
     Route: 048
     Dates: start: 20130404, end: 20130406
  47. OXYCONTIN [Concomitant]
     Indication: NEURALGIA
     Route: 048
     Dates: start: 20130407, end: 20130410
  48. LYRICA [Concomitant]
     Indication: NEURALGIA
     Dosage: 150MG TWICE PER DAY
     Route: 048
     Dates: start: 20130125, end: 20130129
  49. LYRICA [Concomitant]
     Indication: NEURALGIA
     Dosage: 150MG TWICE PER DAY
     Route: 048
     Dates: start: 20130205, end: 20130212
  50. LYRICA [Concomitant]
     Indication: NEURALGIA
     Dosage: 25MG PER DAY
     Route: 048
     Dates: start: 20130205, end: 20130223
  51. LYRICA [Concomitant]
     Indication: NEURALGIA
     Dosage: 25MG PER DAY
     Route: 048
     Dates: start: 20130226, end: 20130228
  52. LYRICA [Concomitant]
     Indication: NEURALGIA
     Dosage: 50MG PER DAY
     Route: 048
     Dates: start: 20130301, end: 20130301
  53. LYRICA [Concomitant]
     Indication: NEURALGIA
     Dosage: 25MG PER DAY
     Route: 048
     Dates: start: 20130302, end: 20130303
  54. LYRICA [Concomitant]
     Indication: NEURALGIA
     Dosage: 50MG PER DAY
     Route: 048
     Dates: start: 20130304, end: 20130304
  55. LYRICA [Concomitant]
     Indication: NEURALGIA
     Dosage: 25MG PER DAY
     Route: 048
     Dates: start: 20130305, end: 20130314
  56. LYRICA [Concomitant]
     Indication: NEURALGIA
     Dosage: 25MG TWICE PER DAY
     Route: 048
     Dates: start: 20130318, end: 20130318
  57. LYRICA [Concomitant]
     Indication: NEURALGIA
     Dosage: 50MG TWICE PER DAY
     Route: 048
     Dates: start: 20130319, end: 20130321
  58. LYRICA [Concomitant]
     Indication: NEURALGIA
     Dosage: 25MG TWICE PER DAY
     Route: 048
     Dates: start: 20130322, end: 20130322
  59. LYRICA [Concomitant]
     Indication: NEURALGIA
     Dosage: 25MG TWICE PER DAY
     Route: 048
     Dates: start: 20130325, end: 20130327
  60. LYRICA [Concomitant]
     Indication: NEURALGIA
     Dosage: 50MG TWICE PER DAY
     Route: 048
     Dates: start: 20130328, end: 20130328
  61. LYRICA [Concomitant]
     Indication: NEURALGIA
     Dosage: 25MG TWICE PER DAY
     Route: 048
     Dates: start: 20130329, end: 20130403
  62. LYRICA [Concomitant]
     Indication: NEURALGIA
     Dosage: 50MG TWICE PER DAY
     Route: 048
     Dates: start: 20130404, end: 20130406
  63. LYRICA [Concomitant]
     Indication: NEURALGIA
     Dosage: 25MG TWICE PER DAY
     Route: 048
     Dates: start: 20130407, end: 20130410
  64. THYRADIN S [Concomitant]
     Dosage: 25MCG PER DAY
     Route: 048
     Dates: start: 20130307, end: 20130313
  65. THYRADIN S [Concomitant]
     Dosage: 50MCG PER DAY
     Route: 048
     Dates: start: 20130314, end: 20130314
  66. THYRADIN S [Concomitant]
     Dosage: 25MCG PER DAY
     Route: 048
     Dates: start: 20130315, end: 20130318
  67. THYRADIN S [Concomitant]
     Dosage: 50MCG PER DAY
     Route: 048
     Dates: start: 20130319, end: 20130321
  68. THYRADIN S [Concomitant]
     Dosage: 25MCG PER DAY
     Route: 048
     Dates: start: 20130322, end: 20130322
  69. THYRADIN S [Concomitant]
     Dosage: 25MCG PER DAY
     Route: 048
     Dates: start: 20130325, end: 20130327
  70. THYRADIN S [Concomitant]
     Dosage: 50MCG PER DAY
     Route: 048
     Dates: start: 20130328, end: 20130328
  71. THYRADIN S [Concomitant]
     Dosage: 25MCG PER DAY
     Route: 048
     Dates: start: 20130329, end: 20130403
  72. THYRADIN S [Concomitant]
     Dosage: 75MCG PER DAY
     Route: 048
     Dates: start: 20130404, end: 20130406
  73. THYRADIN S [Concomitant]
     Dosage: 50MCG PER DAY
     Route: 048
     Dates: start: 20130407, end: 20130410
  74. AMLODIN OD [Concomitant]
     Dosage: 5MG PER DAY
     Route: 048
     Dates: start: 20130215, end: 20130223
  75. AMLODIN OD [Concomitant]
     Dosage: 5MG PER DAY
     Route: 048
     Dates: start: 20130226, end: 20130301
  76. AMLODIN OD [Concomitant]
     Dosage: 5MG PER DAY
     Route: 048
     Dates: start: 20130311, end: 20130313
  77. AMLODIN OD [Concomitant]
     Dosage: 10MG PER DAY
     Route: 048
     Dates: start: 20130314, end: 20130314
  78. AMLODIN OD [Concomitant]
     Dosage: 5MG PER DAY
     Route: 048
     Dates: start: 20130315, end: 20130318
  79. AMLODIN OD [Concomitant]
     Dosage: 10MG PER DAY
     Route: 048
     Dates: start: 20130319, end: 20130321
  80. AMLODIN OD [Concomitant]
     Dosage: 5MG PER DAY
     Route: 048
     Dates: start: 20130322, end: 20130322
  81. AMLODIN OD [Concomitant]
     Dosage: 5MG PER DAY
     Route: 048
     Dates: start: 20130325, end: 20130327
  82. AMLODIN OD [Concomitant]
     Dosage: 10MG PER DAY
     Route: 048
     Dates: start: 20130328, end: 20130328
  83. AMLODIN OD [Concomitant]
     Dosage: 5MG PER DAY
     Route: 048
     Dates: start: 20130329, end: 20130401
  84. VOLTAREN [Concomitant]
     Dosage: 25MG THREE TIMES PER DAY
     Route: 048
     Dates: start: 20130125, end: 20130129
  85. VOLTAREN [Concomitant]
     Dosage: 25MG THREE TIMES PER DAY
     Route: 048
     Dates: start: 20130205, end: 20130212
  86. MUCOSTA [Concomitant]
     Dosage: 100MG THREE TIMES PER DAY
     Route: 048
     Dates: start: 20130125, end: 20130129
  87. MUCOSTA [Concomitant]
     Dosage: 100MG THREE TIMES PER DAY
     Route: 048
     Dates: start: 20130205, end: 20130212
  88. TAKEPRON [Concomitant]
     Dosage: 15MG PER DAY
     Route: 048
     Dates: start: 20130125, end: 20130129
  89. TAKEPRON [Concomitant]
     Dosage: 15MG PER DAY
     Route: 048
     Dates: start: 20130205, end: 20130212
  90. OXINORM [Concomitant]
     Route: 048
     Dates: start: 20130125, end: 20130129
  91. OXINORM [Concomitant]
     Route: 048
     Dates: start: 20130319, end: 20130319
  92. OXINORM [Concomitant]
     Route: 048
     Dates: start: 20130320, end: 20130320
  93. OXINORM [Concomitant]
     Route: 048
     Dates: start: 20130322, end: 20130322
  94. OXINORM [Concomitant]
     Route: 048
     Dates: start: 20130401, end: 20130401
  95. OXINORM [Concomitant]
     Route: 048
     Dates: start: 20130404, end: 20130404
  96. HARNAL [Concomitant]
     Dosage: .2MG PER DAY
     Route: 048
     Dates: start: 20130125, end: 20130129
  97. HARNAL [Concomitant]
     Dosage: .2MG PER DAY
     Route: 048
     Dates: start: 20130205, end: 20130215
  98. MYONAL [Concomitant]
     Dosage: 50MG THREE TIMES PER DAY
     Route: 048
     Dates: start: 20130125, end: 20130129
  99. MYONAL [Concomitant]
     Dosage: 50MG THREE TIMES PER DAY
     Route: 048
     Dates: start: 20130205, end: 20130212
  100. KYTRIL [Concomitant]
     Dosage: 1MG PER DAY
     Route: 048
     Dates: start: 20130205, end: 20130223
  101. NEUROTROPIN [Concomitant]
     Dosage: 8IU TWICE PER DAY
     Route: 048
     Dates: start: 20130205, end: 20130218
  102. ACETAMINOPHEN [Concomitant]
     Dosage: .6G FOUR TIMES PER DAY
     Route: 048
     Dates: start: 20130206, end: 20130223
  103. PROCHLORPERAZINE MALEATE [Concomitant]
     Dosage: 5MG THREE TIMES PER DAY
     Route: 048
     Dates: start: 20130208, end: 20130211
  104. PROCHLORPERAZINE MALEATE [Concomitant]
     Dosage: 5MG THREE TIMES PER DAY
     Route: 048
     Dates: start: 20130218, end: 20130223
  105. PROCHLORPERAZINE MALEATE [Concomitant]
     Dosage: 5MG THREE TIMES PER DAY
     Route: 048
     Dates: start: 20130226, end: 20130301
  106. TAMIFLU [Concomitant]
     Dosage: 75MG PER DAY
     Route: 048
     Dates: start: 20130212, end: 20130218
  107. CRAVIT [Concomitant]
     Dosage: 500MG PER DAY
     Route: 048
     Dates: start: 20130215, end: 20130223
  108. CRAVIT [Concomitant]
     Dosage: 500MG PER DAY
     Route: 048
     Dates: start: 20130226, end: 20130301
  109. MINOMYCIN [Concomitant]
     Dosage: 100MG TWICE PER DAY
     Route: 048
     Dates: start: 20130215, end: 20130223
  110. MINOMYCIN [Concomitant]
     Dosage: 100MG TWICE PER DAY
     Route: 048
     Dates: start: 20130226, end: 20130301
  111. VITAMEDIN [Concomitant]
     Route: 042
     Dates: start: 20130205, end: 20130209
  112. VITAMEDIN [Concomitant]
     Route: 042
     Dates: start: 20130211, end: 20130212
  113. ROCEPHIN [Concomitant]
     Route: 042
     Dates: start: 20130206, end: 20130215
  114. TARGOCID [Concomitant]
     Route: 042
     Dates: start: 20130208, end: 20130209
  115. TARGOCID [Concomitant]
     Route: 042
     Dates: start: 20130210, end: 20130215
  116. ISODINE GARGLE [Concomitant]
     Dosage: 30ML THREE TIMES PER DAY
     Route: 002
     Dates: start: 20130304, end: 20130304
  117. FUNGIZONE [Concomitant]
     Dosage: 20ML THREE TIMES PER DAY
     Route: 048
     Dates: start: 20130311, end: 20130317
  118. ITRIZOLE [Concomitant]
     Dosage: 200MG PER DAY
     Route: 048
     Dates: start: 20130318, end: 20130324
  119. UNKNOWN [Concomitant]
     Dosage: 50G TWICE PER DAY
     Route: 061
     Dates: start: 20130321, end: 20130321
  120. UNKNOWN [Concomitant]
     Dosage: 50G TWICE PER DAY
     Route: 061
     Dates: start: 20130329, end: 20130329
  121. UNKNOWN [Concomitant]
     Dosage: 50G TWICE PER DAY
     Route: 061
     Dates: start: 20130401, end: 20130401
  122. UNKNOWN [Concomitant]
     Dosage: 50G TWICE PER DAY
     Route: 061
     Dates: start: 20130404, end: 20130404
  123. AZUNOL [Concomitant]
     Dosage: 30G TWICE PER DAY
     Route: 061
     Dates: start: 20130322, end: 20130322
  124. AZUNOL [Concomitant]
     Dosage: 6.66ML THREE TIMES PER DAY
     Route: 002
     Dates: start: 20130325, end: 20130325
  125. AZUNOL [Concomitant]
     Dosage: 6.66ML THREE TIMES PER DAY
     Route: 002
     Dates: start: 20130328, end: 20130328
  126. AZUNOL [Concomitant]
     Dosage: 6.66ML THREE TIMES PER DAY
     Route: 002
     Dates: start: 20130401, end: 20130401
  127. AZUNOL [Concomitant]
     Dosage: 6.66ML THREE TIMES PER DAY
     Route: 002
     Dates: start: 20130404, end: 20130404
  128. NEUTROGIN [Concomitant]
     Route: 058
     Dates: start: 20130318, end: 20130318
  129. KENEI G [Concomitant]
     Dosage: 1IUAX FIVE TIMES PER DAY
     Route: 054
     Dates: start: 20130329, end: 20130329
  130. KENEI G [Concomitant]
     Dosage: 1IUAX FIVE TIMES PER DAY
     Route: 054
     Dates: start: 20130401, end: 20130401
  131. KENEI G [Concomitant]
     Dosage: 1IUAX FIVE TIMES PER DAY
     Route: 054
     Dates: start: 20130404, end: 20130404
  132. SOLITA-T NO.3 [Concomitant]
     Route: 042
     Dates: start: 20130407, end: 20130407
  133. MORPHINE HYDROCHLORIDE [Concomitant]
     Dates: start: 20130407, end: 20130407
  134. SOLITA-T NO.1 [Concomitant]
     Route: 042
     Dates: start: 20130407, end: 20130407

REACTIONS (12)
  - Pneumothorax [Recovered/Resolved]
  - Bone marrow failure [Not Recovered/Not Resolved]
  - Pyelonephritis [Recovering/Resolving]
  - Platelet count decreased [Recovered/Resolved]
  - Pyrexia [Recovering/Resolving]
  - Nausea [Recovering/Resolving]
  - Hypertension [Recovered/Resolved]
  - Malaise [Recovered/Resolved]
  - Dysgeusia [Not Recovered/Not Resolved]
  - Hypoaesthesia oral [Not Recovered/Not Resolved]
  - Hypothyroidism [Recovering/Resolving]
  - Hair colour changes [Not Recovered/Not Resolved]
